FAERS Safety Report 8406878 (Version 3)
Quarter: 2013Q1

REPORT INFORMATION
  Report Type: Spontaneous
  Country: US (occurrence: None)
  Receive Date: 20120203
  Receipt Date: 20121109
  Transmission Date: 20140127
  Serious: Yes (Other)
  Sender: FDA-Public Use
  Company Number: 2012S1000018

PATIENT
  Sex: Female

DRUGS (20)
  1. CUBICIN [Suspect]
     Indication: BRONCHOPULMONARY DYSPLASIA
  2. EPINEPHRINE [Concomitant]
  3. CAFFEINE CITRATE [Concomitant]
  4. INDOCIN [Concomitant]
  5. AMPICILLIN [Concomitant]
  6. FUROSEMIDE [Concomitant]
  7. SODIUM BICARBONATE [Concomitant]
  8. CEFOTAXIME [Concomitant]
  9. VANCOMYCIN [Concomitant]
  10. FUROSEMIDE [Concomitant]
  11. FLUCONAZOLE [Concomitant]
  12. SODIUM BICARBONATE [Concomitant]
  13. AMPICILLIN [Concomitant]
  14. FENTANYL [Concomitant]
  15. VERSED [Concomitant]
  16. KETAMINE HYDROCHLORIDE [Concomitant]
  17. ROCURONIUM BROMIDE [Concomitant]
  18. ATROPINE [Concomitant]
  19. NORMAL-SERUM-ALBUMIN (HUMAN) [Concomitant]
  20. AMPICILLIN [Concomitant]

REACTIONS (14)
  - Atelectasis neonatal [None]
  - Haematuria [None]
  - Cardiac murmur [None]
  - Acidosis [None]
  - Condition aggravated [None]
  - Abdominal distension [None]
  - Sepsis neonatal [None]
  - Neonatal anuria [None]
  - Antibiotic level above therapeutic [None]
  - Pulmonary eosinophilia [None]
  - Pulmonary interstitial emphysema syndrome [None]
  - Neonatal hypotension [None]
  - Patent ductus arteriosus [None]
  - Pneumothorax [None]
